FAERS Safety Report 21422981 (Version 1)
Quarter: 2022Q4

REPORT INFORMATION
  Report Type: Spontaneous
  Country: US (occurrence: US)
  Receive Date: 20221007
  Receipt Date: 20221007
  Transmission Date: 20230113
  Serious: Yes (Hospitalization)
  Sender: FDA-Public Use
  Company Number: US-PFIZER INC-202201207180

PATIENT
  Age: 62 Year
  Sex: Male

DRUGS (1)
  1. INLYTA [Suspect]
     Active Substance: AXITINIB
     Indication: Neoplasm
     Dosage: 5 MG, 2X/DAY
     Dates: start: 20191126

REACTIONS (5)
  - Diarrhoea [Unknown]
  - Gastric disorder [Unknown]
  - Rash [Unknown]
  - Fatigue [Unknown]
  - Diabetes mellitus [Unknown]
